FAERS Safety Report 8208702 (Version 5)
Quarter: 2015Q1

REPORT INFORMATION
  Report Type: Spontaneous
  Country: US (occurrence: US)
  Receive Date: 20111028
  Receipt Date: 20150213
  Transmission Date: 20150721
  Serious: Yes (Other)
  Sender: FDA-Public Use
  Company Number: US-ASTRAZENECA-2011SE17682

PATIENT
  Age: 67 Year
  Sex: Female
  Weight: 81.6 kg

DRUGS (14)
  1. POTASSIUM [Concomitant]
     Active Substance: POTASSIUM
     Indication: BLOOD POTASSIUM DECREASED
     Dosage: 10 MEQ DAILY
  2. PREDNISONE. [Concomitant]
     Active Substance: PREDNISONE
  3. RHINOCORT AQUA [Suspect]
     Active Substance: BUDESONIDE
     Route: 045
  4. NEXIUM [Suspect]
     Active Substance: ESOMEPRAZOLE MAGNESIUM
     Indication: GASTROINTESTINAL DISORDER
     Route: 048
  5. CRESTOR [Concomitant]
     Active Substance: ROSUVASTATIN CALCIUM
     Indication: BLOOD CHOLESTEROL ABNORMAL
  6. DIOVAN [Concomitant]
     Active Substance: VALSARTAN
     Indication: BLOOD PRESSURE ABNORMAL
  7. JANUMET XR [Concomitant]
     Active Substance: METFORMIN HYDROCHLORIDE\SITAGLIPTIN PHOSPHATE
     Indication: DIABETES MELLITUS
     Dosage: 50/1000 TWICE DAILY
  8. GLIPIZIDE. [Concomitant]
     Active Substance: GLIPIZIDE
     Dates: start: 2014
  9. SYNTHROID [Concomitant]
     Active Substance: LEVOTHYROXINE SODIUM
     Indication: THYROID DISORDER
  10. STEROIDS [Concomitant]
     Active Substance: UNSPECIFIED INGREDIENT
  11. WATER PILL [Concomitant]
     Active Substance: UNSPECIFIED INGREDIENT
  12. FUROSEMIDE. [Concomitant]
     Active Substance: FUROSEMIDE
     Indication: DIURETIC THERAPY
  13. NEXIUM [Suspect]
     Active Substance: ESOMEPRAZOLE MAGNESIUM
     Route: 048
  14. ZYRTEC [Concomitant]
     Active Substance: CETIRIZINE HYDROCHLORIDE

REACTIONS (23)
  - Fall [Unknown]
  - Memory impairment [Unknown]
  - Intentional product misuse [Unknown]
  - Drug ineffective [Unknown]
  - Foot fracture [Unknown]
  - Weight increased [Unknown]
  - Thyroid disorder [Unknown]
  - Contusion [Unknown]
  - Diabetes mellitus [Unknown]
  - Pain in extremity [Unknown]
  - Insomnia [Unknown]
  - Swelling [Unknown]
  - Dry eye [Unknown]
  - Cough [Unknown]
  - Weight fluctuation [Unknown]
  - Brain neoplasm [Unknown]
  - Blood cholesterol increased [Unknown]
  - Peripheral swelling [Unknown]
  - Malaise [Unknown]
  - Vomiting [Unknown]
  - Hiatus hernia [Unknown]
  - Road traffic accident [Unknown]
  - Limb injury [Unknown]

NARRATIVE: CASE EVENT DATE: 2002
